FAERS Safety Report 6106036-7 (Version None)
Quarter: 2009Q1

REPORT INFORMATION
  Report Type: 
  Country: None (occurrence: None)
  Receive Date: 20090306
  Receipt Date: 20090306
  Transmission Date: 20090719
  Serious: Yes (Life-Threatening, Congenital Anomaly, Other)
  Sender: FDA-Public Use
  Company Number: None

PATIENT
  Sex: Male
  Weight: 89.3586 kg

DRUGS (7)
  1. REMERON [Suspect]
     Indication: DEPRESSION
     Dosage: 15-30 MG BEDTIME NIGHTLY ORAL
     Route: 048
     Dates: start: 19990101
  2. REMERON [Suspect]
     Indication: DEPRESSION
     Dosage: 15-30 MG BEDTIME NIGHTLY ORAL
     Route: 048
     Dates: start: 20010101
  3. REMERON [Suspect]
     Indication: DEPRESSION
     Dosage: 15-30 MG BEDTIME NIGHTLY ORAL
     Route: 048
     Dates: start: 20080101
  4. DEPAKOTE [Suspect]
     Indication: DEPRESSION
     Dosage: 500 MG BEDTIME NIGHTLY ORAL
     Route: 048
     Dates: start: 20090101
  5. DEPAKOTE [Suspect]
     Indication: HEADACHE
     Dosage: 500 MG BEDTIME NIGHTLY ORAL
     Route: 048
     Dates: start: 20090101
  6. DEPAKOTE [Suspect]
     Indication: DEPRESSION
     Dosage: 500 MG BEDTIME NIGHTLY ORAL
     Route: 048
     Dates: start: 20090211
  7. DEPAKOTE [Suspect]
     Indication: HEADACHE
     Dosage: 500 MG BEDTIME NIGHTLY ORAL
     Route: 048
     Dates: start: 20090211

REACTIONS (4)
  - DRY MOUTH [None]
  - LETHARGY [None]
  - PERFORMANCE STATUS DECREASED [None]
  - SEDATION [None]
